FAERS Safety Report 24060539 (Version 2)
Quarter: 2024Q3

REPORT INFORMATION
  Report Type: Spontaneous
  Country: JP (occurrence: JP)
  Receive Date: 20240708
  Receipt Date: 20240710
  Transmission Date: 20241017
  Serious: Yes (Other)
  Sender: PFIZER
  Company Number: JP-MLMSERVICE-20240625-PI112000-00218-1

PATIENT
  Age: 75 Year
  Sex: Female

DRUGS (2)
  1. METHOTREXATE SODIUM [Suspect]
     Active Substance: METHOTREXATE SODIUM
     Indication: Rheumatoid arthritis
     Dosage: 6 MG, WEEKLY
  2. BUCILLAMINE [Concomitant]
     Active Substance: BUCILLAMINE
     Indication: Rheumatoid arthritis
     Dosage: 200 MG, 1X/DAY

REACTIONS (4)
  - Hydronephrosis [Recovered/Resolved]
  - Lymphoproliferative disorder [Recovered/Resolved]
  - Escherichia urinary tract infection [Recovered/Resolved]
  - Bladder cancer [Recovered/Resolved]
